FAERS Safety Report 9516592 (Version 2)
Quarter: 2013Q3

REPORT INFORMATION
  Report Type: Spontaneous
  Country: GB (occurrence: GB)
  Receive Date: 20130911
  Receipt Date: 20130924
  Transmission Date: 20140515
  Serious: Yes (Life-Threatening, Other)
  Sender: FDA-Public Use
  Company Number: GB-TEVA-429956ISR

PATIENT
  Age: 80 Year
  Sex: Female

DRUGS (1)
  1. CO-AMOXICLAV [Suspect]
     Indication: PROPHYLAXIS
     Route: 042

REACTIONS (2)
  - Anaphylactic reaction [Recovered/Resolved]
  - Cardiac arrest [Recovered/Resolved]
